FAERS Safety Report 5913889-1 (Version None)
Quarter: 2008Q4

REPORT INFORMATION
  Report Type: 
  Country: None (occurrence: None)
  Receive Date: 20081009
  Receipt Date: 20081006
  Transmission Date: 20090506
  Serious: Yes (Hospitalization)
  Sender: FDA-Public Use
  Company Number: B0536924A

PATIENT
  Age: 64 Year
  Sex: Female
  Weight: 73 kg

DRUGS (6)
  1. ARIXTRA [Suspect]
     Indication: THROMBOSIS PROPHYLAXIS
     Dosage: 2.5MG PER DAY
     Route: 058
     Dates: start: 20080902, end: 20080908
  2. D-ALFA [Concomitant]
     Indication: OSTEOPOROSIS
     Dosage: 1MCG PER DAY
     Route: 048
     Dates: start: 20080902
  3. UNKNOWN DRUG [Concomitant]
     Indication: PAIN
     Dosage: 60MG THREE TIMES PER DAY
     Route: 048
     Dates: start: 20080902
  4. MUCOSTA [Concomitant]
     Dosage: 100MG THREE TIMES PER DAY
     Route: 048
     Dates: start: 20080902
  5. GANATON [Concomitant]
     Dosage: 50MG THREE TIMES PER DAY
     Route: 048
     Dates: start: 20080902
  6. FLOMOX [Concomitant]
     Indication: INFECTION PROPHYLAXIS
     Dosage: 100MG THREE TIMES PER DAY
     Route: 048
     Dates: start: 20080902

REACTIONS (6)
  - ANAEMIA [None]
  - HAEMATOCRIT DECREASED [None]
  - HAEMOGLOBIN DECREASED [None]
  - PLATELET COUNT INCREASED [None]
  - RED BLOOD CELL COUNT DECREASED [None]
  - WHITE BLOOD CELL COUNT INCREASED [None]
